FAERS Safety Report 17996007 (Version 1)
Quarter: 2020Q3

REPORT INFORMATION
  Report Type: Spontaneous
  Country: CN (occurrence: CN)
  Receive Date: 20200708
  Receipt Date: 20200708
  Transmission Date: 20201103
  Serious: Yes (Other)
  Sender: FDA-Public Use
  Company Number: CN-SA-2020SA172159

PATIENT

DRUGS (3)
  1. LYXUMIA [Suspect]
     Active Substance: LIXISENATIDE
     Dosage: 20 UG, QD
     Route: 058
     Dates: start: 20200605, end: 20200615
  2. LYXUMIA [Suspect]
     Active Substance: LIXISENATIDE
     Dosage: 10 UG, QD
     Route: 058
     Dates: start: 20200615
  3. LYXUMIA [Suspect]
     Active Substance: LIXISENATIDE
     Indication: TYPE 2 DIABETES MELLITUS
     Dosage: 10 UG, QD
     Route: 058
     Dates: start: 20200522, end: 20200604

REACTIONS (4)
  - Vomiting [Recovering/Resolving]
  - Cold sweat [Recovering/Resolving]
  - Nausea [Recovering/Resolving]
  - Dizziness [Recovering/Resolving]

NARRATIVE: CASE EVENT DATE: 20200615
